FAERS Safety Report 9689415 (Version 2)
Quarter: 2013Q4

REPORT INFORMATION
  Report Type: Spontaneous
  Country: JP (occurrence: JP)
  Receive Date: 20131114
  Receipt Date: 20131202
  Transmission Date: 20140711
  Serious: Yes (Death)
  Sender: FDA-Public Use
  Company Number: JP-ASTRAZENECA-2013SE83155

PATIENT
  Age: 26646 Day
  Sex: Female

DRUGS (15)
  1. MEROPEN [Suspect]
     Indication: CHOLANGITIS
     Route: 042
     Dates: start: 20131026, end: 20131028
  2. MEROPEN [Suspect]
     Indication: CHOLANGITIS
     Route: 042
     Dates: start: 20131029, end: 20131031
  3. MEROPEN [Suspect]
     Indication: CHOLANGITIS
     Route: 042
     Dates: start: 20131101, end: 20131102
  4. SULPERAZON [Concomitant]
  5. CRAVIT [Concomitant]
  6. METILON [Concomitant]
  7. ALBUMIN [Concomitant]
  8. DORMICUM [Concomitant]
  9. DOPAMINE HYDROCHLORIDE [Concomitant]
  10. LASIX [Concomitant]
  11. TAKEPRON [Concomitant]
  12. DEPAKENE [Concomitant]
  13. UBIRON [Concomitant]
  14. CEREGASRON [Concomitant]
  15. TULOBUTEROL [Concomitant]

REACTIONS (1)
  - Renal failure acute [Fatal]
